FAERS Safety Report 9075996 (Version 2)
Quarter: 2013Q1

REPORT INFORMATION
  Report Type: Report from Study
  Country: DE (occurrence: DE)
  Receive Date: 20130129
  Receipt Date: 20130219
  Transmission Date: 20140127
  Serious: Yes (Death, Hospitalization, Other)
  Sender: FDA-Public Use
  Company Number: DE-ABBOTT-13P-062-1042562-00

PATIENT
  Age: 78 Year
  Sex: Male

DRUGS (3)
  1. TRENANTONE [Suspect]
     Indication: PROSTATE CANCER
     Route: 058
     Dates: start: 20120730, end: 20121011
  2. ASS [Concomitant]
     Indication: PRODUCT USED FOR UNKNOWN INDICATION
  3. ANTIANDROGENS [Concomitant]
     Indication: PROSTATE CANCER

REACTIONS (2)
  - Renal failure [Fatal]
  - Neoplasm progression [Not Recovered/Not Resolved]
